FAERS Safety Report 7450651-5 (Version None)
Quarter: 2011Q2

REPORT INFORMATION
  Report Type: 
  Country: None (occurrence: None)
  Receive Date: 20110422
  Receipt Date: 20110414
  Transmission Date: 20111010
  Serious: Yes (Hospitalization)
  Sender: FDA-Public Use
  Company Number: 1000020339

PATIENT
  Age: 80 Year
  Sex: Female

DRUGS (3)
  1. SPIRIVA (TIOTROPIUM BROMIDE) (TIOTROPIUM BROMIDE) [Concomitant]
  2. ADVAIR (SERETIDE) (-SERTIDE) [Concomitant]
  3. DALIRESP [Suspect]
     Dosage: 500 MCG (500 MCG,1 IN 1 D), ORAL
     Route: 048
     Dates: start: 20110211, end: 20110318

REACTIONS (1)
  - PNEUMONIA [None]
